FAERS Safety Report 8118469-8 (Version None)
Quarter: 2012Q1

REPORT INFORMATION
  Report Type: 
  Country: None (occurrence: None)
  Receive Date: 20120207
  Receipt Date: 20120126
  Transmission Date: 20120608
  Serious: Yes (Other)
  Sender: FDA-Public Use
  Company Number: US-JNJFOC-20120202321

PATIENT
  Sex: Female

DRUGS (7)
  1. DIHYDROCODEINE BITARTRATE INJ [Concomitant]
  2. ORAMORPH SR [Concomitant]
  3. ACETAMINOPHEN AND CODEINE PHOSPHATE [Concomitant]
  4. ACETAMINOPHEN [Suspect]
     Indication: PRODUCT USED FOR UNKNOWN INDICATION
  5. CODEINE PHOSPHATE [Concomitant]
  6. ACETAMINOPHEN [Suspect]
  7. IBUPROFEN [Suspect]
     Indication: PRODUCT USED FOR UNKNOWN INDICATION
     Route: 065

REACTIONS (1)
  - SYNCOPE [None]
